FAERS Safety Report 11439018 (Version 1)
Quarter: 2015Q3

REPORT INFORMATION
  Report Type: Spontaneous
  Country: US (occurrence: US)
  Receive Date: 20150901
  Receipt Date: 20150901
  Transmission Date: 20151125
  Serious: No
  Sender: FDA-Public Use
  Company Number: US-ROCHE-1108953

PATIENT
  Sex: Male

DRUGS (2)
  1. PEGASYS [Suspect]
     Active Substance: PEGINTERFERON ALFA-2A
     Indication: HEPATITIS C
     Route: 065
     Dates: start: 20120824
  2. RIBAVIRIN. [Suspect]
     Active Substance: RIBAVIRIN
     Indication: HEPATITIS C
     Route: 065
     Dates: start: 20120824

REACTIONS (7)
  - Pyrexia [Unknown]
  - Muscular weakness [Unknown]
  - Body temperature increased [Unknown]
  - Chills [Unknown]
  - Fatigue [Unknown]
  - Musculoskeletal disorder [Unknown]
  - Protein total decreased [Unknown]
